FAERS Safety Report 23777892 (Version 1)
Quarter: 2024Q2

REPORT INFORMATION
  Report Type: Spontaneous
  Country: MX (occurrence: None)
  Receive Date: 20240423
  Receipt Date: 20240423
  Transmission Date: 20240716
  Serious: No
  Sender: FDA-Public Use
  Company Number: None

PATIENT
  Age: 25 Year
  Sex: Male

DRUGS (1)
  1. ESCITALOPRAM [Suspect]
     Active Substance: ESCITALOPRAM OXALATE

REACTIONS (10)
  - Anhedonia [None]
  - Libido decreased [None]
  - Urethral pain [None]
  - Cognitive disorder [None]
  - Memory impairment [None]
  - Testicular pain [None]
  - Paraesthesia [None]
  - Emotional poverty [None]
  - Suicidal ideation [None]
  - Decreased interest [None]

NARRATIVE: CASE EVENT DATE: 20240326
